FAERS Safety Report 6603334-5 (Version None)
Quarter: 2010Q1

REPORT INFORMATION
  Report Type: 
  Country: None (occurrence: None)
  Receive Date: 20100226
  Receipt Date: 20090129
  Transmission Date: 20100710
  Serious: No
  Sender: FDA-Public Use
  Company Number: A0766711A

PATIENT
  Sex: Male

DRUGS (1)
  1. VALTREX [Suspect]
     Indication: GENITAL HERPES
     Dosage: 500MG TWICE PER DAY
     Route: 048

REACTIONS (3)
  - CONFUSIONAL STATE [None]
  - THERAPEUTIC RESPONSE DECREASED [None]
  - THERAPEUTIC RESPONSE UNEXPECTED [None]
